FAERS Safety Report 8429321-2 (Version None)
Quarter: 2012Q2

REPORT INFORMATION
  Report Type: 
  Country: None (occurrence: None)
  Receive Date: 20120612
  Receipt Date: 20120611
  Transmission Date: 20120825
  Serious: Yes (Death)
  Sender: FDA-Public Use
  Company Number: PHHY2012NL049654

PATIENT
  Sex: Male

DRUGS (3)
  1. ZOMETA [Suspect]
     Dosage: 4 MG/ 100 ML ONCE PER 28
     Route: 042
     Dates: start: 20120423
  2. ZOMETA [Suspect]
     Indication: RENAL CELL CARCINOMA
     Dosage: 4 MG/ 100 ML ONCE PER 28
     Route: 042
     Dates: start: 20120326
  3. ZOMETA [Suspect]
     Dosage: 4 MG/ 100 ML ONCE PER 28
     Route: 042
     Dates: start: 20120521

REACTIONS (1)
  - DEATH [None]
